FAERS Safety Report 21757215 (Version 1)
Quarter: 2022Q4

REPORT INFORMATION
  Report Type: Spontaneous
  Country: US (occurrence: US)
  Receive Date: 20221220
  Receipt Date: 20221220
  Transmission Date: 20230112
  Serious: No
  Sender: FDA-Public Use
  Company Number: US-CELLTRION INC.-2022US012018

PATIENT

DRUGS (3)
  1. RITUXIMAB [Suspect]
     Active Substance: RITUXIMAB
     Indication: Fibrillary glomerulonephritis
     Dosage: 375 MG/M2 IN FOUR DOSES
  2. PREDNISONE [Suspect]
     Active Substance: PREDNISONE
     Indication: Fibrillary glomerulonephritis
     Dosage: 60 MG, DAILY (0.5MG/KG/DAY)
  3. PREDNISONE [Suspect]
     Active Substance: PREDNISONE
     Dosage: TAPERING DOSE

REACTIONS (2)
  - Off label use [Unknown]
  - Treatment failure [Unknown]
